FAERS Safety Report 13776440 (Version 1)
Quarter: 2017Q3

REPORT INFORMATION
  Report Type: Report from Study
  Country: US (occurrence: US)
  Receive Date: 20170720
  Receipt Date: 20170720
  Transmission Date: 20171127
  Serious: Yes (Hospitalization)
  Sender: FDA-Public Use
  Company Number: US-ACTELION-A-US2017-154127

PATIENT
  Age: 77 Year
  Sex: Male

DRUGS (10)
  1. UPTRAVI [Suspect]
     Active Substance: SELEXIPAG
     Dosage: 200 MCG, BID
     Route: 048
     Dates: start: 20170522, end: 20170705
  2. UPTRAVI [Suspect]
     Active Substance: SELEXIPAG
     Dosage: 400 MCG, BID
     Route: 048
     Dates: start: 20170705, end: 20170707
  3. UPTRAVI [Suspect]
     Active Substance: SELEXIPAG
     Indication: PULMONARY ARTERIAL HYPERTENSION
     Dosage: 400 MCG, BID
     Route: 048
     Dates: start: 20170426
  4. UPTRAVI [Suspect]
     Active Substance: SELEXIPAG
     Dosage: 200 MCG, BID
     Route: 048
     Dates: start: 20170707
  5. ADCIRCA [Concomitant]
     Active Substance: TADALAFIL
  6. PLAVIX [Concomitant]
     Active Substance: CLOPIDOGREL BISULFATE
  7. ATENOLOL. [Concomitant]
     Active Substance: ATENOLOL
  8. LIPITOR [Concomitant]
     Active Substance: ATORVASTATIN CALCIUM
  9. FUROSEMIDE. [Concomitant]
     Active Substance: FUROSEMIDE
  10. ZETIA [Concomitant]
     Active Substance: EZETIMIBE

REACTIONS (5)
  - Pain in extremity [Not Recovered/Not Resolved]
  - Myalgia [Unknown]
  - Sleep disorder [Unknown]
  - Blood glucose increased [Recovered/Resolved]
  - Dyspnoea [Unknown]

NARRATIVE: CASE EVENT DATE: 2017
